FAERS Safety Report 19092750 (Version 1)
Quarter: 2021Q2

REPORT INFORMATION
  Report Type: Spontaneous
  Country: GB (occurrence: GB)
  Receive Date: 20210405
  Receipt Date: 20210405
  Transmission Date: 20210717
  Serious: Yes (Other)
  Sender: FDA-Public Use
  Company Number: GB-OTSUKA-2016_006246

PATIENT
  Sex: Male

DRUGS (1)
  1. ABILIFY MAINTENA [Suspect]
     Active Substance: ARIPIPRAZOLE
     Indication: SCHIZOPHRENIA
     Dosage: 400 MG, ONCE MONTHLY
     Route: 030
     Dates: end: 20160212

REACTIONS (4)
  - Adverse event [Unknown]
  - Schizophrenia [Unknown]
  - Acute psychosis [Unknown]
  - Malaise [Unknown]
